FAERS Safety Report 6554263-7 (Version None)
Quarter: 2010Q1

REPORT INFORMATION
  Report Type: 
  Country: None (occurrence: None)
  Receive Date: 20100127
  Receipt Date: 20100115
  Transmission Date: 20100710
  Serious: Yes (Death)
  Sender: FDA-Public Use
  Company Number: GB-WATSON-2010-00655

PATIENT

DRUGS (2)
  1. CITALOPRAM HYDROBROMIDE [Suspect]
     Indication: DEPRESSION
     Dosage: 20 MG, UNK
     Route: 048
     Dates: start: 20081101, end: 20081201
  2. COMBINED ORAL CONTRACEPTIVE [Concomitant]
     Indication: DRUG USE FOR UNKNOWN INDICATION
     Dosage: UNK

REACTIONS (5)
  - COMA [None]
  - HEADACHE [None]
  - MALAISE [None]
  - RASH [None]
  - SUDDEN CARDIAC DEATH [None]
